FAERS Safety Report 10916699 (Version 1)
Quarter: 2015Q1

REPORT INFORMATION
  Report Type: Spontaneous
  Country: US (occurrence: None)
  Receive Date: 20150312
  Receipt Date: 20150312
  Transmission Date: 20150721
  Serious: Yes (Other)
  Sender: FDA-Public Use
  Company Number: None

PATIENT
  Age: 31 Year
  Sex: Male
  Weight: 88.45 kg

DRUGS (3)
  1. ZOLOFT [Concomitant]
     Active Substance: SERTRALINE HYDROCHLORIDE
  2. VISTERAL [Concomitant]
  3. ZOLOFT GENERIC BRAND 100 MG DAILY [Suspect]
     Active Substance: SERTRALINE HYDROCHLORIDE
     Dosage: TAKEN BY MOUTH

REACTIONS (4)
  - Incoherent [None]
  - Insomnia [None]
  - Emotional disorder [None]
  - Confusional state [None]

NARRATIVE: CASE EVENT DATE: 20150306
